FAERS Safety Report 15418098 (Version 1)
Quarter: 2018Q3

REPORT INFORMATION
  Report Type: Spontaneous
  Country: US (occurrence: US)
  Receive Date: 20180917
  Receipt Date: 20180917
  Transmission Date: 20181010
  Serious: Yes (Hospitalization)
  Sender: FDA-Public Use
  Company Number: None

PATIENT
  Age: 54 Year
  Sex: Female
  Weight: 110.4 kg

DRUGS (2)
  1. DULOXETINE. [Suspect]
     Active Substance: DULOXETINE
     Indication: BIPOLAR DISORDER
     Route: 048
     Dates: start: 20180501, end: 20180628
  2. DULOXETINE. [Suspect]
     Active Substance: DULOXETINE
     Indication: MANIA
     Route: 048
     Dates: start: 20180501, end: 20180628

REACTIONS (7)
  - Logorrhoea [None]
  - Iatrogenic injury [None]
  - Major depression [None]
  - Mania [None]
  - Grandiosity [None]
  - Psychotic disorder [None]
  - Affect lability [None]

NARRATIVE: CASE EVENT DATE: 20180629
